FAERS Safety Report 14116941 (Version 1)
Quarter: 2017Q4

REPORT INFORMATION
  Report Type: Spontaneous
  Country: None (occurrence: US)
  Receive Date: 20171023
  Receipt Date: 20171023
  Transmission Date: 20180321
  Serious: Yes (Hospitalization)
  Sender: FDA-Public Use
  Company Number: US-PROCTER_AND_GAMBLE-GS17114155

PATIENT

DRUGS (1)
  1. CREST PRO-HEALTH CLINICAL [Suspect]
     Active Substance: CETYLPYRIDINIUM CHLORIDE
     Route: 002

REACTIONS (7)
  - Burning mouth syndrome [Not Recovered/Not Resolved]
  - Sialoadenitis [Unknown]
  - Tooth discolouration [Unknown]
  - Parotid duct obstruction [Unknown]
  - Hypoaesthesia teeth [Recovered/Resolved]
  - Ageusia [Not Recovered/Not Resolved]
  - Tooth fracture [Unknown]
